FAERS Safety Report 15984245 (Version 3)
Quarter: 2019Q1

REPORT INFORMATION
  Report Type: Spontaneous
  Country: US (occurrence: US)
  Receive Date: 20190220
  Receipt Date: 20190328
  Transmission Date: 20190418
  Serious: No
  Sender: FDA-Public Use
  Company Number: US-AMGEN-USASP2019025353

PATIENT
  Age: 64 Year
  Sex: Female
  Weight: 47.62 kg

DRUGS (2)
  1. AIMOVIG [Suspect]
     Active Substance: ERENUMAB-AOOE
     Indication: MIGRAINE WITHOUT AURA
     Dosage: 70 MG, UNK
     Route: 058
     Dates: start: 20181221, end: 20190214
  2. RELPAX [Concomitant]
     Active Substance: ELETRIPTAN HYDROBROMIDE
     Indication: MIGRAINE
     Dosage: 40 AS NECESSARY
     Route: 065
     Dates: start: 2010

REACTIONS (5)
  - Rash [Recovering/Resolving]
  - Muscle spasms [Recovered/Resolved]
  - Dry mouth [Recovering/Resolving]
  - Constipation [Recovering/Resolving]
  - Oral mucosal blistering [Recovering/Resolving]

NARRATIVE: CASE EVENT DATE: 20190104
